FAERS Safety Report 8157927-7 (Version None)
Quarter: 2012Q1

REPORT INFORMATION
  Report Type: 
  Country: None (occurrence: None)
  Receive Date: 20120222
  Receipt Date: 20120215
  Transmission Date: 20120608
  Serious: Yes (Death, Life-Threatening, Hospitalization)
  Sender: FDA-Public Use
  Company Number: PHHO2011EG05776

PATIENT
  Sex: Male
  Weight: 70 kg

DRUGS (9)
  1. BLINDED NO TREATMENT RECEIVED [Suspect]
     Indication: MULTIPLE MYELOMA
     Dosage: 20 MG
     Route: 048
     Dates: start: 20110322, end: 20110324
  2. COMPARATOR BORTEZOMIB [Suspect]
     Dosage: 2.35 MG, ON DAY 1
     Route: 042
     Dates: start: 20110322, end: 20110323
  3. DIAMICRON [Concomitant]
  4. BLINDED LBH589 [Suspect]
     Indication: MULTIPLE MYELOMA
     Dosage: 20 MG
     Route: 048
     Dates: start: 20110322, end: 20110324
  5. BLINDED PLACEBO [Suspect]
     Indication: MULTIPLE MYELOMA
     Dosage: 20 MG
     Route: 048
     Dates: start: 20110322, end: 20110324
  6. VELCADE [Suspect]
     Indication: MULTIPLE MYELOMA
     Dosage: 20 MG
     Route: 048
     Dates: start: 20110322, end: 20110324
  7. BLINDED FORTECORTIN [Suspect]
     Indication: MULTIPLE MYELOMA
     Dosage: 20 MG
     Route: 048
     Dates: start: 20110322, end: 20110324
  8. BISOPROLOL FUMARATE [Concomitant]
  9. COMPARATOR DEXAMETHASONE [Suspect]
     Dosage: 20 MG
     Route: 048
     Dates: start: 20110322, end: 20110322

REACTIONS (3)
  - THROMBOCYTOPENIA [None]
  - HAEMORRHAGE INTRACRANIAL [None]
  - CONCOMITANT DISEASE PROGRESSION [None]
